FAERS Safety Report 7813765-3 (Version None)
Quarter: 2011Q4

REPORT INFORMATION
  Report Type: 
  Country: None (occurrence: None)
  Receive Date: 20111014
  Receipt Date: 20111003
  Transmission Date: 20120403
  Serious: Yes (Other)
  Sender: FDA-Public Use
  Company Number: CA-JNJFOC-20111003043

PATIENT
  Sex: Female
  Weight: 97.07 kg

DRUGS (9)
  1. NEXIUM [Concomitant]
     Route: 065
  2. SOLU-CORTEF [Concomitant]
     Indication: PREMEDICATION
     Route: 065
  3. CALCIUM CARBONATE [Concomitant]
     Route: 065
  4. REMICADE [Suspect]
     Indication: CROHN'S DISEASE
     Route: 042
     Dates: start: 20110719, end: 20110912
  5. BENADRYL [Concomitant]
     Route: 048
  6. DICETEL [Concomitant]
     Route: 065
  7. BENADRYL [Concomitant]
     Indication: PREMEDICATION
     Route: 048
  8. EFFEXOR [Concomitant]
     Route: 065
  9. ENTOCORT EC [Concomitant]
     Route: 065

REACTIONS (2)
  - ADVERSE EVENT [None]
  - DRUG INTOLERANCE [None]
